FAERS Safety Report 25686903 (Version 1)
Quarter: 2025Q3

REPORT INFORMATION
  Report Type: Spontaneous
  Country: US (occurrence: US)
  Receive Date: 20250816
  Receipt Date: 20250816
  Transmission Date: 20251020
  Serious: No
  Sender: ELI LILLY AND COMPANY
  Company Number: US-ELI_LILLY_AND_COMPANY-US202508011283

PATIENT
  Age: 74 Year
  Sex: Female

DRUGS (22)
  1. MOUNJARO [Suspect]
     Active Substance: TIRZEPATIDE
     Indication: Diabetes mellitus
     Route: 058
  2. MOUNJARO [Suspect]
     Active Substance: TIRZEPATIDE
     Indication: Diabetes mellitus
     Route: 058
  3. MOUNJARO [Suspect]
     Active Substance: TIRZEPATIDE
     Indication: Diabetes mellitus
     Route: 058
  4. MOUNJARO [Suspect]
     Active Substance: TIRZEPATIDE
     Indication: Diabetes mellitus
     Route: 058
  5. MOUNJARO [Suspect]
     Active Substance: TIRZEPATIDE
     Route: 058
  6. MOUNJARO [Suspect]
     Active Substance: TIRZEPATIDE
     Route: 058
  7. MOUNJARO [Suspect]
     Active Substance: TIRZEPATIDE
     Route: 058
  8. MOUNJARO [Suspect]
     Active Substance: TIRZEPATIDE
     Route: 058
  9. ZYRTEC-D ALLERGY AND CONGESTION [Concomitant]
     Active Substance: CETIRIZINE HYDROCHLORIDE\PSEUDOEPHEDRINE HYDROCHLORIDE
     Indication: Sinusitis
     Dosage: UNK, EACH EVENING
     Route: 065
  10. OMEPRAZOLE [Concomitant]
     Active Substance: OMEPRAZOLE
     Indication: Gastrointestinal disorder
     Route: 065
  11. GABAPENTIN [Concomitant]
     Active Substance: GABAPENTIN
     Indication: Neuropathy peripheral
     Dosage: 100 MG, EACH MORNING
     Route: 065
  12. GABAPENTIN [Concomitant]
     Active Substance: GABAPENTIN
     Dosage: 200 MG, EACH EVENING
     Route: 065
  13. LIPITOR [Concomitant]
     Active Substance: ATORVASTATIN CALCIUM
     Indication: Blood cholesterol
     Route: 065
  14. ASPIRIN [Concomitant]
     Active Substance: ASPIRIN
     Indication: Cardiac disorder
     Dosage: 81 MG, EACH EVENING
     Route: 065
  15. SINGULAIR [Concomitant]
     Active Substance: MONTELUKAST SODIUM
     Indication: Asthma
     Dosage: 10 MG, EACH MORNING
     Route: 065
  16. FENOFIBRIC ACID [Concomitant]
     Active Substance: FENOFIBRIC ACID
     Indication: Blood cholesterol
     Route: 065
  17. FENOFIBRIC ACID [Concomitant]
     Active Substance: FENOFIBRIC ACID
     Route: 065
  18. DULOXETINE [Concomitant]
     Active Substance: DULOXETINE
     Indication: Depression
     Route: 065
  19. ROPINIROLE [Concomitant]
     Active Substance: ROPINIROLE
     Indication: Restless legs syndrome
     Dosage: 2 MG, EACH EVENING
     Route: 065
  20. ATENOLOL [Concomitant]
     Active Substance: ATENOLOL
     Indication: Blood pressure measurement
     Dosage: 25 MG, EACH MORNING
  21. TRESIBA [Concomitant]
     Active Substance: INSULIN DEGLUDEC
     Indication: Blood glucose
     Dosage: 120 MG, EACH MORNING
     Route: 065
  22. NOVOLOG [Concomitant]
     Active Substance: INSULIN ASPART
     Indication: Blood glucose
     Dosage: C

REACTIONS (1)
  - Migraine [Unknown]

NARRATIVE: CASE EVENT DATE: 20250201
